FAERS Safety Report 22160602 (Version 1)
Quarter: 2023Q1

REPORT INFORMATION
  Report Type: Spontaneous
  Country: US (occurrence: US)
  Receive Date: 20230331
  Receipt Date: 20230331
  Transmission Date: 20230418
  Serious: Yes (Death, Other)
  Sender: FDA-Public Use
  Company Number: US-GLAND PHARMA LIMITED-2023US001175

PATIENT
  Age: 57 Year
  Sex: Female

DRUGS (4)
  1. MESNA [Suspect]
     Active Substance: MESNA
     Indication: Sarcoma
     Dosage: UNK
     Route: 065
  2. DOXORUBICIN HYDROCHLORIDE [Suspect]
     Active Substance: DOXORUBICIN HYDROCHLORIDE
     Indication: Sarcoma
     Dosage: UNK
     Route: 065
  3. IFOSFAMIDE [Suspect]
     Active Substance: IFOSFAMIDE
     Indication: Sarcoma
     Dosage: UNK
     Route: 065
  4. APIXABAN [Concomitant]
     Active Substance: APIXABAN
     Indication: Pulmonary embolism
     Dosage: UNK
     Route: 065

REACTIONS (5)
  - Obstructive shock [Fatal]
  - Metastases to lung [Unknown]
  - Metastases to heart [Unknown]
  - Drug ineffective [Unknown]
  - Off label use [Unknown]
